FAERS Safety Report 6888021-0 (Version None)
Quarter: 2010Q3

REPORT INFORMATION
  Report Type: 
  Country: None (occurrence: None)
  Receive Date: 20100730
  Receipt Date: 20100722
  Transmission Date: 20110219
  Serious: Yes (Disabling)
  Sender: FDA-Public Use
  Company Number: B0660674A

PATIENT
  Sex: Male

DRUGS (3)
  1. COROPRES [Suspect]
     Indication: HYPERTENSION
     Dosage: 12.5MG PER DAY
     Route: 065
     Dates: start: 20100203
  2. UNKNOWN DRUG [Suspect]
     Indication: NEOPLASM MALIGNANT
     Route: 042
     Dates: start: 20100204
  3. RAMIPRIL [Concomitant]
     Route: 065
     Dates: start: 20090101

REACTIONS (8)
  - BLOOD PRESSURE INCREASED [None]
  - CHORIORETINOPATHY [None]
  - OPTIC ATROPHY [None]
  - RETINAL DETACHMENT [None]
  - RETINAL PIGMENT EPITHELIOPATHY [None]
  - VISION BLURRED [None]
  - VISUAL ACUITY REDUCED [None]
  - VITREOUS FLOATERS [None]
